FAERS Safety Report 14757773 (Version 1)
Quarter: 2018Q2

REPORT INFORMATION
  Report Type: Spontaneous
  Country: HR (occurrence: HR)
  Receive Date: 20180413
  Receipt Date: 20180413
  Transmission Date: 20180711
  Serious: Yes (Hospitalization)
  Sender: FDA-Public Use
  Company Number: HR-BAYER-2018-070622

PATIENT
  Age: 80 Year
  Sex: Male
  Weight: 75 kg

DRUGS (10)
  1. XARELTO [Suspect]
     Active Substance: RIVAROXABAN
     Indication: ATRIAL FIBRILLATION
     Dosage: 20 MG, QD
     Route: 048
  2. CLOPIDOGREL [Concomitant]
     Active Substance: CLOPIDOGREL BISULFATE
     Dosage: 75 MG, QD
  3. ASPIRIN PROTECT 100 MG [Suspect]
     Active Substance: ASPIRIN
     Dosage: 100 MG, QD
  4. BISOPROLOL [Concomitant]
     Active Substance: BISOPROLOL
  5. FUROSEMIDE. [Concomitant]
     Active Substance: FUROSEMIDE
  6. VALSARTAN. [Concomitant]
     Active Substance: VALSARTAN
  7. SPIRONOLACTONE. [Concomitant]
     Active Substance: SPIRONOLACTONE
  8. NEBIVOLOL. [Concomitant]
     Active Substance: NEBIVOLOL
  9. ATORVASTATIN [Concomitant]
     Active Substance: ATORVASTATIN
     Dosage: UNK
  10. PANTOPRAZOLE [Concomitant]
     Active Substance: PANTOPRAZOLE

REACTIONS (3)
  - Oedema peripheral [None]
  - Cardiac failure acute [None]
  - Off label use [None]

NARRATIVE: CASE EVENT DATE: 201803
